FAERS Safety Report 5753322-6 (Version None)
Quarter: 2008Q2

REPORT INFORMATION
  Report Type: 
  Country: None (occurrence: None)
  Receive Date: 20080530
  Receipt Date: 20080520
  Transmission Date: 20081010
  Serious: Yes (Hospitalization)
  Sender: FDA-Public Use
  Company Number: US-TYCO HEALTHCARE/MALLINCKRODT-T200800866

PATIENT

DRUGS (1)
  1. LIQUID BAROSPERSE [Suspect]

REACTIONS (2)
  - LUNG DISORDER [None]
  - PLEURISY [None]
